FAERS Safety Report 24031090 (Version 1)
Quarter: 2024Q2

REPORT INFORMATION
  Report Type: Spontaneous
  Country: US (occurrence: US)
  Receive Date: 20240628
  Receipt Date: 20240628
  Transmission Date: 20240716
  Serious: No
  Sender: FDA-Public Use
  Company Number: US-GREER Laboratories, Inc.-2158662

PATIENT
  Age: 8 Year
  Sex: Male
  Weight: 51.364 kg

DRUGS (1)
  1. PEANUT [Suspect]
     Active Substance: PEANUT
     Indication: Product used for unknown indication
     Dates: start: 20230302

REACTIONS (4)
  - Drug ineffective [Unknown]
  - Palpitations [Unknown]
  - Fear [Unknown]
  - Panic attack [Unknown]

NARRATIVE: CASE EVENT DATE: 20230302
